FAERS Safety Report 8215477-3 (Version None)
Quarter: 2012Q1

REPORT INFORMATION
  Report Type: 
  Country: None (occurrence: None)
  Receive Date: 20120316
  Receipt Date: 20120305
  Transmission Date: 20120608
  Serious: Yes (Other)
  Sender: FDA-Public Use
  Company Number: GB-ROCHE-1041502

PATIENT
  Age: 18 Year
  Sex: Female

DRUGS (2)
  1. XENICAL [Interacting]
     Indication: PRODUCT USED FOR UNKNOWN INDICATION
     Route: 048
  2. ETONOGESTREL [Suspect]
     Indication: CONTRACEPTION
     Dosage: PL 00065/0161 NEXPLANON IMPLANT FOR SUBDERMAL
     Route: 059

REACTIONS (3)
  - PREGNANCY WITH IMPLANT CONTRACEPTIVE [None]
  - DRUG INTERACTION [None]
  - MATERNAL EXPOSURE DURING PREGNANCY [None]
